FAERS Safety Report 8533458-7 (Version None)
Quarter: 2012Q2

REPORT INFORMATION
  Report Type: 
  Country: None (occurrence: None)
  Receive Date: 20120412
  Receipt Date: 20111229
  Transmission Date: 20120825
  Serious: Yes (Other)
  Sender: FDA-Public Use
  Company Number: 2011S1000117

PATIENT
  Age: 27 Year
  Sex: Male

DRUGS (11)
  1. PREDNISONE [Concomitant]
  2. ULORIC [Concomitant]
  3. KRYSTEXXA [Suspect]
     Indication: URATE NEPHROPATHY
     Dosage: 8 MG;X1;IV X1;IV
     Route: 042
     Dates: start: 20110125, end: 20110125
  4. KRYSTEXXA [Suspect]
     Indication: GOUTY TOPHUS
     Dosage: 8 MG;X1;IV X1;IV
     Route: 042
     Dates: start: 20110125, end: 20110125
  5. KRYSTEXXA [Suspect]
     Indication: URATE NEPHROPATHY
     Dosage: 8 MG;X1;IV X1;IV
     Route: 042
     Dates: start: 20110222, end: 20110222
  6. KRYSTEXXA [Suspect]
     Indication: GOUTY TOPHUS
     Dosage: 8 MG;X1;IV X1;IV
     Route: 042
     Dates: start: 20110222, end: 20110222
  7. KRYSTEXXA [Suspect]
     Indication: URATE NEPHROPATHY
     Dosage: 8 MG;X1;IV X1;IV
     Route: 042
     Dates: start: 20111229, end: 20111229
  8. KRYSTEXXA [Suspect]
     Indication: GOUTY TOPHUS
     Dosage: 8 MG;X1;IV X1;IV
     Route: 042
     Dates: start: 20111229, end: 20111229
  9. KRYSTEXXA [Suspect]
     Indication: URATE NEPHROPATHY
     Dosage: 8 MG;X1;IV X1;IV
     Route: 042
     Dates: start: 20110210, end: 20110210
  10. KRYSTEXXA [Suspect]
     Indication: GOUTY TOPHUS
     Dosage: 8 MG;X1;IV X1;IV
     Route: 042
     Dates: start: 20110210, end: 20110210
  11. MORPHINE SULFATE [Concomitant]

REACTIONS (2)
  - INFUSION RELATED REACTION [None]
  - THERAPEUTIC RESPONSE DECREASED [None]
